FAERS Safety Report 5778870-4 (Version None)
Quarter: 2008Q2

REPORT INFORMATION
  Report Type: 
  Country: None (occurrence: None)
  Receive Date: 20080619
  Receipt Date: 20080609
  Transmission Date: 20081010
  Serious: Yes (Other)
  Sender: FDA-Public Use
  Company Number: US-JNJFOC-20080602861

PATIENT
  Sex: Female
  Weight: 106.1 kg

DRUGS (12)
  1. RISPERIDONE [Suspect]
     Indication: SUICIDAL IDEATION
  2. GEODON [Suspect]
     Indication: BIPOLAR DISORDER
  3. LAMICTAL [Concomitant]
  4. SEROQUEL [Concomitant]
  5. NEXIUM [Concomitant]
  6. LISINOPRIL [Concomitant]
  7. IMITREX [Concomitant]
  8. LEVOXYL [Concomitant]
  9. ALBUTEROL [Concomitant]
  10. MONTELUKAST SODIUM [Concomitant]
  11. POTASSIUM CHLORIDE [Concomitant]
  12. FOLIC ACID [Concomitant]

REACTIONS (3)
  - ANXIETY [None]
  - PAIN IN EXTREMITY [None]
  - SUICIDAL IDEATION [None]
